FAERS Safety Report 9529415 (Version 2)
Quarter: 2013Q3

REPORT INFORMATION
  Report Type: Report from Study
  Country: US (occurrence: US)
  Receive Date: 20130917
  Receipt Date: 20130917
  Transmission Date: 20140515
  Serious: Yes (Other)
  Sender: FDA-Public Use
  Company Number: US-ABBVIE-13P-163-1114843-00

PATIENT
  Sex: Female
  Weight: 78.09 kg

DRUGS (18)
  1. HUMIRA [Suspect]
     Indication: RHEUMATOID ARTHRITIS
     Dates: start: 20130121, end: 20130507
  2. LEVOTHYROXINE [Concomitant]
     Indication: HYPOTHYROIDISM
  3. HYDROCHLOROTHIAZIDE [Concomitant]
     Indication: PERICARDIAL EFFUSION
  4. LOSARTAN [Concomitant]
     Indication: HYPERTENSION
  5. PREDNISONE [Concomitant]
     Indication: RHEUMATOID ARTHRITIS
     Dosage: 1 TAB 2-3 TIMES DAILY ON HER OWN
     Route: 048
  6. ZOLOFT [Concomitant]
     Indication: DEPRESSION
  7. COREG [Concomitant]
     Indication: CARDIAC DISORDER
  8. COUMADIN [Concomitant]
     Indication: CARDIOVASCULAR DISORDER
     Dosage: VARYING UPON LAB RESULTS
     Route: 048
  9. SINGULAIR [Concomitant]
     Indication: ASTHMA
     Route: 048
  10. ALTACE [Concomitant]
     Indication: HYPERTENSION
     Route: 048
  11. VITAMIN D3 [Concomitant]
     Indication: VITAMIN D DECREASED
     Route: 048
  12. CALCIUM [Concomitant]
     Indication: OSTEOPOROSIS
     Dosage: 1 TAB- 500/500-125 UNIT
  13. BENADRYL [Concomitant]
     Indication: HYPERSENSITIVITY
     Route: 048
  14. VENTOLIN [Concomitant]
     Indication: ASTHMA
  15. TRAMADOL [Concomitant]
     Indication: PAIN
     Route: 048
  16. CELEBREX [Concomitant]
     Indication: ARTHRALGIA
     Route: 048
  17. CARVEDILOL [Concomitant]
     Indication: PRODUCT USED FOR UNKNOWN INDICATION
  18. LYRICA [Concomitant]
     Indication: PRODUCT USED FOR UNKNOWN INDICATION
     Route: 048

REACTIONS (33)
  - Intermittent claudication [Unknown]
  - Cardiac disorder [Not Recovered/Not Resolved]
  - Peripheral vascular disorder [Not Recovered/Not Resolved]
  - Malaise [Unknown]
  - Dry mouth [Unknown]
  - Stomatitis [Unknown]
  - Drug ineffective [Unknown]
  - Localised infection [Unknown]
  - Arthralgia [Unknown]
  - Obesity [Unknown]
  - Walking aid user [Unknown]
  - Osteoarthritis [Unknown]
  - Dry mouth [Unknown]
  - Drug-induced liver injury [Unknown]
  - Hypertension [Unknown]
  - Anxiety [Unknown]
  - Chronic obstructive pulmonary disease [Unknown]
  - Brain stem thrombosis [Unknown]
  - Knee arthroplasty [Unknown]
  - Hip arthroplasty [Unknown]
  - Renal failure [Unknown]
  - Dry eye [Unknown]
  - Cerebrovascular accident [Unknown]
  - Wrist fracture [Unknown]
  - Hyperglycaemia [Unknown]
  - Osteoarthritis [Unknown]
  - Arthropathy [Unknown]
  - Peripheral arterial occlusive disease [Unknown]
  - Skin ulcer [Unknown]
  - Arthralgia [Unknown]
  - Deep vein thrombosis [Unknown]
  - Hemiparesis [Unknown]
  - Balance disorder [Unknown]
